FAERS Safety Report 6585410-9 (Version None)
Quarter: 2010Q1

REPORT INFORMATION
  Report Type: 
  Country: None (occurrence: None)
  Receive Date: 20100217
  Receipt Date: 20100215
  Transmission Date: 20100710
  Serious: Yes (Death)
  Sender: FDA-Public Use
  Company Number: A0844499A

PATIENT
  Age: 73 Year
  Sex: Female

DRUGS (3)
  1. ARIXTRA [Suspect]
     Dosage: 10MG PER DAY
     Route: 058
  2. HEART MEDICATION [Concomitant]
  3. PATCH (UNSPECIFIED) [Concomitant]

REACTIONS (1)
  - NEOPLASM MALIGNANT [None]
